FAERS Safety Report 7295591-X (Version None)
Quarter: 2011Q1

REPORT INFORMATION
  Report Type: 
  Country: None (occurrence: None)
  Receive Date: 20110216
  Receipt Date: 20101115
  Transmission Date: 20110831
  Serious: No
  Sender: FDA-Public Use
  Company Number: US-ABBOTT-10P-163-0686022-00

PATIENT
  Sex: Male
  Weight: 102.15 kg

DRUGS (5)
  1. HYZAAR [Concomitant]
     Indication: HYPERTENSION
     Dosage: 100/25 MG ONCE A DAY
     Dates: start: 20101001
  2. HYZAAR [Concomitant]
     Dosage: 50/12.5 MG
     Dates: end: 20101001
  3. SIMCOR [Suspect]
     Indication: LOW DENSITY LIPOPROTEIN INCREASED
     Dosage: 500/20MG ONCE A DAY
     Route: 048
     Dates: start: 20101113, end: 20101114
  4. PROTONIX [Concomitant]
     Indication: GASTROOESOPHAGEAL REFLUX DISEASE
     Dates: start: 20070101, end: 20101001
  5. SIMCOR [Suspect]
     Indication: HIGH DENSITY LIPOPROTEIN DECREASED

REACTIONS (10)
  - HYPERAESTHESIA [None]
  - ERYTHEMA [None]
  - PAIN OF SKIN [None]
  - SKIN TIGHTNESS [None]
  - PRURITUS [None]
  - FATIGUE [None]
  - URTICARIA [None]
  - ARTHROPATHY [None]
  - SKIN BURNING SENSATION [None]
  - FLUSHING [None]
